FAERS Safety Report 7324519-9 (Version None)
Quarter: 2011Q1

REPORT INFORMATION
  Report Type: 
  Country: None (occurrence: None)
  Receive Date: 20110218
  Receipt Date: 20110209
  Transmission Date: 20110831
  Serious: Yes (Hospitalization, Other)
  Sender: FDA-Public Use
  Company Number: WAES 1102USA01193

PATIENT
  Age: 57 Year
  Sex: Female
  Weight: 92.9874 kg

DRUGS (5)
  1. DECADRON [Suspect]
     Indication: METASTASES TO CENTRAL NERVOUS SYSTEM
     Dosage: 4 MG/Q6H/PO
     Route: 048
     Dates: start: 20101231, end: 20110114
  2. CAPECITABINE [Suspect]
     Indication: BREAST CANCER
     Dosage: 500 MG/M [2]/Q12H/PO
     Route: 048
  3. HYDROCHLOROTHIAZIDE (+) IRBESART [Concomitant]
  4. CAP SUNITIB MALATE UNK [Suspect]
     Indication: METASTASES TO CENTRAL NERVOUS SYSTEM
  5. VICODIN [Concomitant]

REACTIONS (4)
  - DIABETIC KETOACIDOSIS [None]
  - CONDITION AGGRAVATED [None]
  - DIABETES MELLITUS [None]
  - ESCHERICHIA BACTERAEMIA [None]
